FAERS Safety Report 6651418 (Version 17)
Quarter: 2013Q4

REPORT INFORMATION
  Report Type: Spontaneous
  Country: US (occurrence: US)
  Receive Date: 20080528
  Receipt Date: 20131221
  Transmission Date: 20140711
  Serious: Yes (Death, Hospitalization, Other)
  Sender: FDA-Public Use
  Company Number: PHEH2008US04759

PATIENT
  Age: 55 Year
  Sex: Male
  Weight: 82.09 kg

DRUGS (33)
  1. ZOMETA [Suspect]
     Indication: PLASMA CELL MYELOMA
     Route: 042
     Dates: start: 200502
  2. ZOMETA [Suspect]
     Indication: HYPERCALCAEMIA
  3. ATENOLOL [Concomitant]
     Dosage: 100 MG, QD
  4. HYDROCHLOROTHIAZIDE [Concomitant]
     Dosage: 50 MG, QD
  5. BABY ASPIRIN [Concomitant]
  6. GLUCOSAMINE [Concomitant]
  7. RADIATION THERAPY [Concomitant]
  8. DEXAMETHASONE [Concomitant]
     Dates: start: 200502
  9. THALIDOMIDE [Concomitant]
     Dates: start: 200502
  10. MARIJUANA [Concomitant]
  11. OXYCODONE [Concomitant]
  12. DIAZEPAM [Concomitant]
  13. SKELAXIN [Concomitant]
     Dosage: 800 MG, PRN
  14. DECADRAN [Concomitant]
  15. CHANTIX [Concomitant]
  16. NYSTATIN [Concomitant]
  17. SODIUM FLUORIDE [Concomitant]
  18. NICODERM [Concomitant]
  19. ANZEMET [Concomitant]
  20. LOPERAMIDE ^BELMAC^ [Concomitant]
  21. CIPRO ^MILES^ [Concomitant]
  22. REVLIMID [Concomitant]
     Dosage: 25 MG, UNK
     Route: 048
  23. DECADRON [Concomitant]
     Dosage: 4 MG, UNK
     Route: 048
     Dates: start: 20100712, end: 20100722
  24. PRILOSEC [Concomitant]
     Dosage: 20 MG, BID
     Route: 048
  25. K-TAB [Concomitant]
     Dosage: 10 MEQ, BID
     Route: 048
  26. LIORESAL [Concomitant]
  27. ZESTRIL [Concomitant]
     Dosage: 10 MG, UNK
     Route: 048
  28. PRINIVIL [Concomitant]
     Dosage: 10 MG, UNK
     Route: 048
  29. TENORMIN [Concomitant]
  30. MYCOLOG-II [Concomitant]
  31. LACTULOSE [Concomitant]
     Dosage: 10 MG, UNK
  32. COMPAZINE [Concomitant]
  33. MS CONTIN [Concomitant]

REACTIONS (79)
  - Death [Fatal]
  - Tonsil cancer [Unknown]
  - Osteonecrosis of jaw [Unknown]
  - Injury [Unknown]
  - Pain [Unknown]
  - Anxiety [Unknown]
  - Anhedonia [Unknown]
  - Bone disorder [Unknown]
  - Renal failure [Unknown]
  - Anaemia [Unknown]
  - Confusional state [Unknown]
  - Haematocrit abnormal [Unknown]
  - Dysphagia [Unknown]
  - Large intestine polyp [Unknown]
  - Lumbar spinal stenosis [Unknown]
  - Diverticulum [Unknown]
  - Arthralgia [Unknown]
  - Bone erosion [Unknown]
  - Oral candidiasis [Unknown]
  - Deafness [Unknown]
  - Swelling [Unknown]
  - Back pain [Unknown]
  - Dry mouth [Unknown]
  - Dysgeusia [Unknown]
  - Osteopenia [Unknown]
  - Weight decreased [Unknown]
  - Poor personal hygiene [Unknown]
  - Dental plaque [Unknown]
  - Dental caries [Unknown]
  - Mouth ulceration [Unknown]
  - Loose tooth [Unknown]
  - Osteoradionecrosis [Unknown]
  - Lymphadenopathy [Unknown]
  - Neuropathy peripheral [Unknown]
  - Upper respiratory tract infection [Unknown]
  - Thrombocytopenia [Unknown]
  - Deep vein thrombosis [Unknown]
  - Pulmonary embolism [Unknown]
  - Conjunctival haemorrhage [Unknown]
  - Pathological fracture [Unknown]
  - Lumbar vertebral fracture [Unknown]
  - Splenomegaly [Unknown]
  - Haemorrhoids [Unknown]
  - Intervertebral disc degeneration [Unknown]
  - Pneumonia [Unknown]
  - Osteolysis [Unknown]
  - Cataract [Unknown]
  - Intervertebral disc protrusion [Unknown]
  - Vertebral foraminal stenosis [Unknown]
  - Meningeal disorder [Unknown]
  - Ventricular hypertrophy [Unknown]
  - Spondylitis [Unknown]
  - Arthropathy [Unknown]
  - Gingivitis [Unknown]
  - Tooth fracture [Unknown]
  - Constipation [Unknown]
  - Oral mucosal erythema [Unknown]
  - Cheilitis [Unknown]
  - Exposed bone in jaw [Unknown]
  - Hyperkeratosis [Unknown]
  - Aortic calcification [Unknown]
  - Hyponatraemia [Unknown]
  - Hypokalaemia [Unknown]
  - Abdominal pain upper [Unknown]
  - Dehydration [Unknown]
  - Bone neoplasm [Unknown]
  - Prostatomegaly [Unknown]
  - Pyrexia [Unknown]
  - Nausea [Unknown]
  - Vomiting [Unknown]
  - Diarrhoea [Unknown]
  - Bone cancer [Unknown]
  - Second primary malignancy [Unknown]
  - Osteomyelitis [Unknown]
  - Bone atrophy [Unknown]
  - Exostosis of jaw [Unknown]
  - Scarlet fever [Unknown]
  - Throat cancer [Unknown]
  - Cough [Unknown]
